FAERS Safety Report 17847461 (Version 1)
Quarter: 2020Q2

REPORT INFORMATION
  Report Type: Report from Study
  Country: GB (occurrence: GB)
  Receive Date: 20200601
  Receipt Date: 20200601
  Transmission Date: 20200714
  Serious: Yes (Other)
  Sender: FDA-Public Use
  Company Number: NVSC2020GB113975

PATIENT
  Age: 84 Year
  Sex: Female

DRUGS (1)
  1. KISQALI [Suspect]
     Active Substance: RIBOCICLIB
     Indication: BREAST CANCER
     Dosage: 300 MG, TID
     Route: 048
     Dates: start: 20191015

REACTIONS (3)
  - Limb injury [Unknown]
  - Diarrhoea [Unknown]
  - Wound infection [Unknown]

NARRATIVE: CASE EVENT DATE: 20200414
